FAERS Safety Report 12740393 (Version 2)
Quarter: 2016Q3

REPORT INFORMATION
  Report Type: Spontaneous
  Country: US (occurrence: US)
  Receive Date: 20160913
  Receipt Date: 20160922
  Transmission Date: 20161109
  Serious: Yes (Other)
  Sender: FDA-Public Use
  Company Number: US-ASTELLAS-2016US014748

PATIENT
  Sex: Male

DRUGS (1)
  1. XTANDI [Suspect]
     Active Substance: ENZALUTAMIDE
     Indication: PROSTATE CANCER
     Dosage: 160 MG (40 MG X 4 CAPSULES), ONCE DAILY
     Route: 065

REACTIONS (6)
  - Weight decreased [Not Recovered/Not Resolved]
  - Prostatic specific antigen increased [Unknown]
  - Haemoglobin decreased [Not Recovered/Not Resolved]
  - Pain in extremity [Unknown]
  - Decreased appetite [Unknown]
  - Peripheral swelling [Not Recovered/Not Resolved]
